FAERS Safety Report 8404542-3 (Version None)
Quarter: 2012Q2

REPORT INFORMATION
  Report Type: 
  Country: None (occurrence: None)
  Receive Date: 20120601
  Receipt Date: 20120523
  Transmission Date: 20120825
  Serious: Yes (Hospitalization, Other)
  Sender: FDA-Public Use
  Company Number: US-ASTRAZENECA-2011SE11034

PATIENT
  Age: 53 Year
  Sex: Female

DRUGS (1)
  1. SEROQUEL [Suspect]
     Dosage: 300 MG, ONE TABLET AT NIGHT
     Route: 048

REACTIONS (4)
  - CONTUSION [None]
  - FALL [None]
  - RIB FRACTURE [None]
  - CHRONIC OBSTRUCTIVE PULMONARY DISEASE [None]
